FAERS Safety Report 7197998-8 (Version None)
Quarter: 2010Q4

REPORT INFORMATION
  Report Type: 
  Country: None (occurrence: None)
  Receive Date: 20101227
  Receipt Date: 20101215
  Transmission Date: 20110411
  Serious: Yes (Hospitalization)
  Sender: FDA-Public Use
  Company Number: US-ROCHE-749255

PATIENT
  Sex: Male
  Weight: 95.2 kg

DRUGS (7)
  1. BEVACIZUMAB [Suspect]
     Indication: NON-SMALL CELL LUNG CANCER
     Route: 042
     Dates: start: 20100902, end: 20101110
  2. PACLITAXEL [Suspect]
     Indication: NON-SMALL CELL LUNG CANCER
     Route: 065
     Dates: start: 20100902, end: 20101110
  3. CARBOPLATIN [Suspect]
     Indication: NON-SMALL CELL LUNG CANCER
     Dosage: DOSE 6 AUC
     Route: 042
     Dates: start: 20100902, end: 20101110
  4. ONDANSETRON [Suspect]
     Indication: ANTIEMETIC SUPPORTIVE CARE
     Route: 065
  5. SIMVASTATIN [Concomitant]
  6. SEROQUEL [Concomitant]
     Indication: BIPOLAR DISORDER
  7. KEPPRA [Concomitant]
     Indication: CONVULSION

REACTIONS (5)
  - ABDOMINAL PAIN [None]
  - HAEMOPTYSIS [None]
  - LEUKOCYTOSIS [None]
  - NEPHROLITHIASIS [None]
  - URINARY TRACT INFECTION [None]
